FAERS Safety Report 6119000-9 (Version None)
Quarter: 2009Q1

REPORT INFORMATION
  Report Type: 
  Country: None (occurrence: None)
  Receive Date: 20090316
  Receipt Date: 20090309
  Transmission Date: 20090719
  Serious: No
  Sender: FDA-Public Use
  Company Number: US-BAYER-200836873NA

PATIENT
  Age: 35 Year
  Sex: Female
  Weight: 61 kg

DRUGS (1)
  1. MIRENA [Suspect]
     Indication: CONTRACEPTION
     Route: 015
     Dates: start: 20080818, end: 20081023

REACTIONS (6)
  - DYSPAREUNIA [None]
  - EMOTIONAL DISORDER [None]
  - GENITAL HAEMORRHAGE [None]
  - IUCD COMPLICATION [None]
  - PELVIC DISCOMFORT [None]
  - VULVOVAGINAL MYCOTIC INFECTION [None]
